FAERS Safety Report 18550651 (Version 1)
Quarter: 2020Q4

REPORT INFORMATION
  Report Type: Spontaneous
  Country: US (occurrence: US)
  Receive Date: 20201126
  Receipt Date: 20201126
  Transmission Date: 20210114
  Serious: No
  Sender: FDA-Public Use
  Company Number: US-PFIZER INC-2020464281

PATIENT
  Age: 65 Year
  Sex: Female
  Weight: 78.02 kg

DRUGS (5)
  1. AROMASIN [Suspect]
     Active Substance: EXEMESTANE
     Indication: INVASIVE DUCTAL BREAST CARCINOMA
     Dosage: 25 MG, DAILY
     Route: 048
  2. DULOXETINE. [Concomitant]
     Active Substance: DULOXETINE
     Dosage: 90 MG, DAILY
     Dates: start: 202002
  3. CLONAZEPAM. [Concomitant]
     Active Substance: CLONAZEPAM
     Indication: ANXIETY
     Dosage: 0.25 MG (0.25MG 2-3 TIMES DAILY)
     Dates: start: 20200423
  4. GABAPENTIN. [Concomitant]
     Active Substance: GABAPENTIN
     Indication: PAIN
     Dosage: 200 MG, 1X/DAY (200 MG ONCE NIGHTLY)
     Dates: start: 202002
  5. DULOXETINE. [Concomitant]
     Active Substance: DULOXETINE
     Indication: DEPRESSION
     Dosage: 90 MG, 1X/DAY (SHE TAKES 60 MG AND A 30 MG TO EQUAL 90MG, ONCE DAILY)
     Dates: start: 202002

REACTIONS (4)
  - Arthralgia [Not Recovered/Not Resolved]
  - Crying [Recovering/Resolving]
  - Feeling abnormal [Not Recovered/Not Resolved]
  - Fatigue [Not Recovered/Not Resolved]
